FAERS Safety Report 4604167-1 (Version None)
Quarter: 2005Q1

REPORT INFORMATION
  Report Type: 
  Country: None (occurrence: None)
  Receive Date: 20050214
  Receipt Date: 20041115
  Transmission Date: 20050727
  Serious: No
  Sender: FDA-Public Use
  Company Number: US_0411108095

PATIENT
  Age: 53 Year
  Sex: Male

DRUGS (3)
  1. CIALIS [Suspect]
     Indication: ERECTILE DYSFUNCTION
     Dosage: 10 MG/3 WEEK
     Dates: start: 20041101
  2. CIALIS [Suspect]
     Indication: PROPHYLAXIS
     Dosage: 10 MG/3 WEEK
     Dates: start: 20041101
  3. LIPITOR [Concomitant]

REACTIONS (2)
  - BACK PAIN [None]
  - PAIN IN EXTREMITY [None]
